FAERS Safety Report 5190635-3 (Version None)
Quarter: 2006Q4

REPORT INFORMATION
  Report Type: 
  Country: None (occurrence: None)
  Receive Date: 20061222
  Receipt Date: 20061017
  Transmission Date: 20070319
  Serious: No
  Sender: FDA-Public Use
  Company Number: US-BRISTOL-MYERS SQUIBB COMPANY-13544564

PATIENT
  Age: 58 Year
  Sex: Female
  Weight: 117 kg

DRUGS (15)
  1. ORENCIA [Suspect]
     Indication: RHEUMATOID ARTHRITIS
     Dosage: VIAL #2 LOT #MTN532A EXPIRATION DATE OCT-2007
     Route: 042
     Dates: start: 20060821
  2. GLYBURIDE [Concomitant]
  3. LIPITOR [Concomitant]
  4. ZESTRIL [Concomitant]
  5. PRILOSEC [Concomitant]
  6. LOVASTATIN [Concomitant]
  7. RELAFEN [Concomitant]
  8. PLAQUENIL [Concomitant]
  9. METHOTREXATE [Concomitant]
  10. FOLIC ACID [Concomitant]
  11. PROZAC [Concomitant]
  12. NORTRIPTYLINE HCL [Concomitant]
  13. ACTONEL [Concomitant]
  14. CALCIUM [Concomitant]
  15. VITAMIN D [Concomitant]

REACTIONS (1)
  - HEADACHE [None]
